FAERS Safety Report 8580114-5 (Version None)
Quarter: 2012Q3

REPORT INFORMATION
  Report Type: 
  Country: None (occurrence: None)
  Receive Date: 20120808
  Receipt Date: 20120801
  Transmission Date: 20120928
  Serious: Yes (Other)
  Sender: FDA-Public Use
  Company Number: BR-PFIZER INC-2012173317

PATIENT
  Age: 73 Year
  Sex: Female

DRUGS (4)
  1. LYRICA [Suspect]
     Indication: NEURALGIA
     Dosage: 75 MG/DAY
     Route: 048
     Dates: start: 20120410
  2. LYRICA [Suspect]
     Dosage: 75 MG, 2X/DAY
     Route: 048
  3. LYRICA [Suspect]
     Dosage: DOSE INCREASED
  4. VENLAFAXINE [Concomitant]
     Dosage: UNK

REACTIONS (8)
  - SPINAL COLUMN STENOSIS [None]
  - DIZZINESS [None]
  - SPINAL PAIN [None]
  - FALL [None]
  - HIP FRACTURE [None]
  - FRACTURED SACRUM [None]
  - PUBIS FRACTURE [None]
  - SOMNOLENCE [None]
